FAERS Safety Report 17700393 (Version 2)
Quarter: 2020Q3

REPORT INFORMATION
  Report Type: Spontaneous
  Country: US (occurrence: US)
  Receive Date: 20200423
  Receipt Date: 20200904
  Transmission Date: 20201102
  Serious: No
  Sender: FDA-Public Use
  Company Number: US-PFIZER INC-2020159945

PATIENT
  Age: 80 Year
  Sex: Female

DRUGS (1)
  1. FLECTOR [Suspect]
     Active Substance: DICLOFENAC EPOLAMINE
     Indication: INFLAMMATORY PAIN
     Dosage: UNK, 2X/DAY (1 PATCH 2 TIMES A DAY)
     Route: 062

REACTIONS (1)
  - Back disorder [Unknown]
